FAERS Safety Report 17191894 (Version 2)
Quarter: 2020Q1

REPORT INFORMATION
  Report Type: Report from Study
  Country: IT (occurrence: IT)
  Receive Date: 20191223
  Receipt Date: 20200106
  Transmission Date: 20200409
  Serious: Yes (Hospitalization)
  Sender: FDA-Public Use
  Company Number: IT-AVEXISPRA-CTR-AVXS12019-0035

PATIENT
  Age: 2 Month
  Sex: Male
  Weight: 5.09 kg

DRUGS (1)
  1. AVXS-101 [Suspect]
     Active Substance: ONASEMNOGENE ABEPARVOVEC
     Indication: SPINAL MUSCULAR ATROPHY
     Dosage: 15.1 MILLILITER, SINGLE
     Route: 042
     Dates: start: 20180919, end: 20180919

REACTIONS (2)
  - Respiratory therapy [Recovered/Resolved]
  - Nutritional supplementation [Recovered/Resolved]

NARRATIVE: CASE EVENT DATE: 20180905
